FAERS Safety Report 18967895 (Version 2)
Quarter: 2021Q1

REPORT INFORMATION
  Report Type: Report from Study
  Country: HN (occurrence: HN)
  Receive Date: 20210304
  Receipt Date: 20210316
  Transmission Date: 20210420
  Serious: Yes (Life-Threatening, Hospitalization, Other)
  Sender: FDA-Public Use
  Company Number: NVSC2021HN046289

PATIENT
  Sex: Male
  Weight: 63.49 kg

DRUGS (1)
  1. EXFORGE [Suspect]
     Active Substance: AMLODIPINE BESYLATE\VALSARTAN
     Indication: HYPERTENSION
     Dosage: 1 DF
     Route: 065
     Dates: end: 2020

REACTIONS (8)
  - Neuropathy peripheral [Unknown]
  - Pleural effusion [Unknown]
  - Hypertension [Unknown]
  - Respiratory disorder [Unknown]
  - Gallbladder rupture [Unknown]
  - Sepsis [Unknown]
  - Cardiac failure [Unknown]
  - Diabetes mellitus [Unknown]

NARRATIVE: CASE EVENT DATE: 2013
